FAERS Safety Report 5178899-3 (Version None)
Quarter: 2006Q4

REPORT INFORMATION
  Report Type: 
  Country: None (occurrence: None)
  Receive Date: 20061208
  Receipt Date: 20061201
  Transmission Date: 20070319
  Serious: Yes (Other)
  Sender: FDA-Public Use
  Company Number: 2006SP007517

PATIENT
  Sex: Female

DRUGS (6)
  1. CLARINEX [Suspect]
     Indication: DRUG USE FOR UNKNOWN INDICATION
     Dosage: 5 MG; QD; PO
     Route: 048
     Dates: start: 20060204, end: 20060207
  2. CLONIDINE HCL [Suspect]
     Indication: DRUG USE FOR UNKNOWN INDICATION
     Dosage: 0.1 MG; BID; PO - SEE IMAGE
     Route: 048
     Dates: start: 20060201, end: 20060202
  3. CLONIDINE HCL [Suspect]
     Indication: DRUG USE FOR UNKNOWN INDICATION
     Dosage: 0.1 MG; BID; PO - SEE IMAGE
     Route: 048
     Dates: start: 20060207, end: 20060207
  4. SYNTHROID (CON.) [Concomitant]
  5. TOPROL XL (CON.) [Concomitant]
  6. AVAPRO (CON.) [Concomitant]

REACTIONS (5)
  - AMNESIA [None]
  - CONFUSIONAL STATE [None]
  - DRY MOUTH [None]
  - LIP SWELLING [None]
  - SOMNOLENCE [None]
